FAERS Safety Report 13360505 (Version 2)
Quarter: 2017Q1

REPORT INFORMATION
  Report Type: Spontaneous
  Country: GB (occurrence: GB)
  Receive Date: 20170322
  Receipt Date: 20170329
  Transmission Date: 20170429
  Serious: Yes (Hospitalization)
  Sender: FDA-Public Use
  Company Number: GB-SHIRE-GB201706333

PATIENT
  Age: 4 Year
  Sex: Male

DRUGS (1)
  1. ELAPRASE [Suspect]
     Active Substance: IDURSULFASE
     Indication: MUCOPOLYSACCHARIDOSIS II
     Dosage: 1 MG/KG, 1X/WEEK
     Route: 041
     Dates: start: 200905

REACTIONS (1)
  - Ear disorder [Unknown]

NARRATIVE: CASE EVENT DATE: 2010
